FAERS Safety Report 11271946 (Version 1)
Quarter: 2015Q3

REPORT INFORMATION
  Report Type: Spontaneous
  Country: US (occurrence: None)
  Receive Date: 20150713
  Receipt Date: 20150713
  Transmission Date: 20151125
  Serious: Yes (Other)
  Sender: FDA-Public Use
  Company Number: None

PATIENT
  Age: 39 Year
  Sex: Female
  Weight: 53.98 kg

DRUGS (2)
  1. AMOXICILLIN 500MG TEVA [Suspect]
     Active Substance: AMOXICILLIN
     Indication: ENDODONTIC PROCEDURE
     Dosage: 1 PILL
     Route: 048
     Dates: start: 20150627, end: 20150704
  2. AMOXICILLIN 500MG TEVA [Suspect]
     Active Substance: AMOXICILLIN
     Indication: TOOTH ABSCESS
     Dosage: 1 PILL
     Route: 048
     Dates: start: 20150627, end: 20150704

REACTIONS (1)
  - Hypersensitivity [None]

NARRATIVE: CASE EVENT DATE: 20150704
